FAERS Safety Report 16118926 (Version 1)
Quarter: 2019Q1

REPORT INFORMATION
  Report Type: Report from Study
  Country: US (occurrence: US)
  Receive Date: 20190326
  Receipt Date: 20190326
  Transmission Date: 20190418
  Serious: Yes (Hospitalization)
  Sender: FDA-Public Use
  Company Number: US-PFIZER INC-2019038127

PATIENT
  Age: 76 Year
  Sex: Male

DRUGS (3)
  1. SUTENT [Suspect]
     Active Substance: SUNITINIB MALATE
     Indication: RENAL CELL CARCINOMA
     Dosage: 37.5 MG, CYCLIC (DAILY, 14 DAYS ON THEN 7 DAYS OFF)
     Route: 048
     Dates: start: 20190115, end: 20190127
  2. SUTENT [Suspect]
     Active Substance: SUNITINIB MALATE
     Indication: RENAL CANCER
     Dosage: 25 MG, DAILY
     Route: 048
     Dates: start: 20190130
  3. SUTENT [Suspect]
     Active Substance: SUNITINIB MALATE
     Dosage: 25 MG, DAILY(25MG FOR 14 DAYS ON, 7 DAYS OFF)
     Route: 048
     Dates: start: 20190115

REACTIONS (4)
  - Diarrhoea [Recovering/Resolving]
  - Asthenia [Unknown]
  - Nausea [Recovering/Resolving]
  - Gait inability [Unknown]

NARRATIVE: CASE EVENT DATE: 201901
